FAERS Safety Report 21160792 (Version 1)
Quarter: 2022Q3

REPORT INFORMATION
  Report Type: Spontaneous
  Country: US (occurrence: US)
  Receive Date: 20220802
  Receipt Date: 20220802
  Transmission Date: 20221026
  Serious: No
  Sender: FDA-Public Use
  Company Number: US-BRISTOL-MYERS SQUIBB COMPANY-2022-082924

PATIENT
  Age: 47 Year
  Sex: Female
  Weight: 63.14 kg

DRUGS (2)
  1. OPDIVO [Suspect]
     Active Substance: NIVOLUMAB
     Indication: Huerthle cell carcinoma
     Dosage: DOSE : 240 MG;     FREQ : EVERY 2 WEEKS
     Route: 065
     Dates: end: 20220728
  2. LEVOXINE [LEVOTHYROXINE SODIUM] [Concomitant]
     Indication: Product used for unknown indication
     Route: 065

REACTIONS (2)
  - Nodule [Unknown]
  - Intentional product use issue [Unknown]

NARRATIVE: CASE EVENT DATE: 20220728
